FAERS Safety Report 6709641-X (Version None)
Quarter: 2010Q2

REPORT INFORMATION
  Report Type: 
  Country: None (occurrence: None)
  Receive Date: 20100430
  Receipt Date: 20100417
  Transmission Date: 20101027
  Serious: Yes (Other)
  Sender: FDA-Public Use
  Company Number: 2010AP000798

PATIENT
  Age: 7 Year
  Sex: Male

DRUGS (4)
  1. ONDANSETRON HYDROCHLORIDE [Suspect]
     Indication: PROPHYLAXIS OF NAUSEA AND VOMITING
     Dosage: 400 MG;Q8H;PO
     Route: 048
  2. GRANISETRON HYDROCHLORIDE INJECTION (GRANISETRON HYDROCHLORIDE) [Suspect]
     Dosage: 480 UG, Q12H, IV
     Route: 042
  3. ONDANSETRON [Concomitant]
  4. GRANISETRON (GRANISETRON) [Concomitant]

REACTIONS (3)
  - DYSKINESIA [None]
  - EXCESSIVE EYE BLINKING [None]
  - PROTRUSION TONGUE [None]
